FAERS Safety Report 5583626-1 (Version None)
Quarter: 2007Q4

REPORT INFORMATION
  Report Type: 
  Country: None (occurrence: None)
  Receive Date: 20071231
  Receipt Date: 20060612
  Transmission Date: 20080405
  Serious: No
  Sender: FDA-Public Use
  Company Number: 20074455

PATIENT
  Sex: Female

DRUGS (2)
  1. LIORESAL [Suspect]
     Indication: MUSCLE SPASTICITY
     Dosage: MCG, DAILY, INTRATHECAL
     Route: 037
  2. UNSPECIFIED ANTIBIOTIC [Concomitant]

REACTIONS (5)
  - ABASIA [None]
  - ASTHENIA [None]
  - CYSTITIS [None]
  - MUSCLE SPASMS [None]
  - PHARMACEUTICAL PRODUCT COMPLAINT [None]
